FAERS Safety Report 6058029-6 (Version None)
Quarter: 2009Q1

REPORT INFORMATION
  Report Type: 
  Country: None (occurrence: None)
  Receive Date: 20090127
  Receipt Date: 20090114
  Transmission Date: 20090719
  Serious: Yes (Hospitalization)
  Sender: FDA-Public Use
  Company Number: 231943K08USA

PATIENT
  Age: 50 Year
  Sex: Female
  Weight: 96 kg

DRUGS (10)
  1. REBIF [Suspect]
     Indication: MULTIPLE SCLEROSIS
     Dosage: 44 MCG, 3 IN 1WEEKS, SUBCUTANEOUS
     Route: 058
     Dates: start: 20070809
  2. DIOVAN [Concomitant]
  3. ACTOS [Concomitant]
  4. WELLBUTRIN XL [Concomitant]
  5. VALIUM [Concomitant]
  6. PREVACID [Concomitant]
  7. ZOLOFT [Concomitant]
  8. SEROQUEL [Concomitant]
  9. MOTRIN [Concomitant]
  10. LANTUS [Concomitant]

REACTIONS (3)
  - DEPRESSION [None]
  - HEPATIC ENZYME INCREASED [None]
  - PANCREATITIS [None]
